FAERS Safety Report 6356511-5 (Version None)
Quarter: 2009Q3

REPORT INFORMATION
  Report Type: 
  Country: None (occurrence: None)
  Receive Date: 20090915
  Receipt Date: 20090907
  Transmission Date: 20100115
  Serious: Yes (Hospitalization)
  Sender: FDA-Public Use
  Company Number: B0592653A

PATIENT
  Sex: Female
  Weight: 70 kg

DRUGS (4)
  1. LAPATINIB [Suspect]
     Dosage: 1250MG PER DAY
     Route: 048
     Dates: start: 20090823
  2. TAXOL [Suspect]
     Dosage: 138MG CYCLIC
     Route: 042
     Dates: start: 20090823
  3. PRILOSEC [Concomitant]
     Dates: start: 20090828
  4. UNKNOWN MEDICATION [Concomitant]
     Dates: start: 20090828

REACTIONS (3)
  - PYREXIA [None]
  - URINARY TRACT INFECTION [None]
  - UROSEPSIS [None]
